FAERS Safety Report 17749066 (Version 2)
Quarter: 2020Q4

REPORT INFORMATION
  Report Type: Spontaneous
  Country: US (occurrence: US)
  Receive Date: 20200506
  Receipt Date: 20201009
  Transmission Date: 20210113
  Serious: Yes (Hospitalization)
  Sender: FDA-Public Use
  Company Number: US-UCBSA-2020016474

PATIENT
  Age: 58 Year
  Sex: Female
  Weight: 52.16 kg

DRUGS (2)
  1. NAYZILAM [Suspect]
     Active Substance: MIDAZOLAM
     Indication: SEIZURE
     Dosage: 5 MG
     Route: 045
     Dates: start: 20200417, end: 202004
  2. NAYZILAM [Suspect]
     Active Substance: MIDAZOLAM
     Dosage: 10 MG,WHEN NEEDED
     Route: 045
     Dates: start: 202004

REACTIONS (1)
  - Seizure [Recovered/Resolved]

NARRATIVE: CASE EVENT DATE: 20200417
